FAERS Safety Report 15871060 (Version 1)
Quarter: 2019Q1

REPORT INFORMATION
  Report Type: Report from Study
  Country: None (occurrence: RO)
  Receive Date: 20190126
  Receipt Date: 20190126
  Transmission Date: 20190417
  Serious: Yes (Hospitalization)
  Sender: FDA-Public Use
  Company Number: RO-ABBVIE-19K-135-2633570-00

PATIENT
  Age: 66 Year
  Sex: Male

DRUGS (5)
  1. PENTASA [Concomitant]
     Active Substance: MESALAMINE
     Indication: CROHN^S DISEASE
     Route: 048
  2. HUMIRA [Suspect]
     Active Substance: ADALIMUMAB
     Indication: CROHN^S DISEASE
     Route: 058
     Dates: start: 20170515
  3. EUBIOTIC [Concomitant]
     Indication: CROHN^S DISEASE
     Route: 048
  4. ENTEROL [Concomitant]
     Indication: CROHN^S DISEASE
     Route: 048
  5. IMODIUM [Concomitant]
     Active Substance: LOPERAMIDE HYDROCHLORIDE
     Indication: CROHN^S DISEASE
     Route: 048

REACTIONS (7)
  - Hordeolum [Recovered/Resolved]
  - Frequent bowel movements [Not Recovered/Not Resolved]
  - Nephrolithiasis [Not Recovered/Not Resolved]
  - Intraocular pressure increased [Recovered/Resolved]
  - Hordeolum [Recovered/Resolved]
  - Intraocular pressure increased [Recovered/Resolved]
  - Dental caries [Not Recovered/Not Resolved]

NARRATIVE: CASE EVENT DATE: 2018
